FAERS Safety Report 12204201 (Version 1)
Quarter: 2016Q1

REPORT INFORMATION
  Report Type: Spontaneous
  Country: DE (occurrence: DE)
  Receive Date: 20160323
  Receipt Date: 20160323
  Transmission Date: 20160526
  Serious: Yes (Other)
  Sender: FDA-Public Use
  Company Number: DE-BAYER-2015-364361

PATIENT
  Age: 26 Year
  Sex: Female
  Weight: 57 kg

DRUGS (8)
  1. GADOVIST [Suspect]
     Active Substance: GADOBUTROL
     Indication: MULTIPLE SCLEROSIS
     Dosage: 6 ML, ONCE
     Dates: start: 20150601, end: 20150601
  2. FOLIC ACID. [Concomitant]
     Active Substance: FOLIC ACID
  3. SILYBUM MARIANUM [Concomitant]
  4. UDC [Concomitant]
  5. VITAMIN B12 [Concomitant]
     Active Substance: CYANOCOBALAMIN
  6. PREDNISOLON [Concomitant]
     Active Substance: PREDNISOLONE
  7. CALCIUM [Concomitant]
     Active Substance: CALCIUM
  8. GADOVIST [Suspect]
     Active Substance: GADOBUTROL
     Indication: MULTIPLE SCLEROSIS
     Dosage: 7 ML, ONCE
     Dates: start: 20150529, end: 20150529

REACTIONS (2)
  - Maternal exposure during pregnancy [None]
  - Umbilical cord abnormality [Recovered/Resolved]

NARRATIVE: CASE EVENT DATE: 20150529
